FAERS Safety Report 8462745-6 (Version None)
Quarter: 2012Q2

REPORT INFORMATION
  Report Type: 
  Country: None (occurrence: None)
  Receive Date: 20120618
  Receipt Date: 20120618
  Transmission Date: 20120825
  Serious: Yes (Life-Threatening)
  Sender: FDA-Public Use
  Company Number: None

PATIENT
  Age: 59 Year
  Sex: Female
  Weight: 60.3284 kg

DRUGS (1)
  1. METOCLOPRAMIDE HYDROCHLORIDE [Suspect]
     Indication: GASTROOESOPHAGEAL REFLUX DISEASE
     Dosage: 5 MG 4 TIMES PER DAY PO
     Route: 048
     Dates: start: 20120301, end: 20120601

REACTIONS (4)
  - MUSCLE TWITCHING [None]
  - DRUG WITHDRAWAL SYNDROME [None]
  - DEPRESSION [None]
  - ANXIETY [None]
